FAERS Safety Report 4839614-3 (Version None)
Quarter: 2005Q4

REPORT INFORMATION
  Report Type: 
  Country: None (occurrence: None)
  Receive Date: 20051129
  Receipt Date: 20050404
  Transmission Date: 20060501
  Serious: No
  Sender: FDA-Public Use
  Company Number: 2005-01017

PATIENT
  Age: 39 Year
  Sex: Female

DRUGS (6)
  1. WELLBUTRIN SR [Suspect]
     Indication: DEPRESSION
     Dosage: 300MG IN THE MORNING
     Route: 048
     Dates: start: 20040101
  2. TRAZODONE [Suspect]
     Indication: DEPRESSION
     Dosage: 1TAB AT NIGHT
     Route: 048
     Dates: start: 20050101
  3. THEO-24 [Concomitant]
     Dates: start: 19990101
  4. VENTOLIN [Concomitant]
     Dates: start: 19990101
  5. TOPAMAX [Concomitant]
     Dosage: 25MG UNKNOWN
     Route: 065
     Dates: start: 20050101
  6. PAROXETINE HCL [Concomitant]
     Dosage: 40MG UNKNOWN
     Route: 048
     Dates: start: 20030101

REACTIONS (3)
  - DEPRESSION [None]
  - NON-CARDIAC CHEST PAIN [None]
  - SOMNOLENCE [None]
